FAERS Safety Report 9303667 (Version 2)
Quarter: 2013Q2

REPORT INFORMATION
  Report Type: Spontaneous
  Country: AR (occurrence: AR)
  Receive Date: 20130522
  Receipt Date: 20130524
  Transmission Date: 20140414
  Serious: Yes (Death, Hospitalization, Other)
  Sender: FDA-Public Use
  Company Number: AR-SHIRE-ALL1-2013-02758

PATIENT
  Age: 12 Year
  Sex: Male
  Weight: 35.5 kg

DRUGS (5)
  1. ELAPRASE [Suspect]
     Indication: MUCOPOLYSACCHARIDOSIS II
     Dosage: 18 MG, 1X/WEEK
     Dates: start: 20070726
  2. DEXAMETHASONE [Concomitant]
     Indication: PREMEDICATION
     Dosage: UNK, UNKNOWN
     Route: 065
  3. ADRENALINA                         /00003901/ [Concomitant]
     Indication: PREMEDICATION
     Dosage: UNK, UNKNOWN
     Route: 065
  4. BENADRYL                           /00000402/ [Concomitant]
     Indication: PREMEDICATION
     Dosage: UNK, UNKNOWN
     Route: 065
  5. PARACETAMOL [Concomitant]
     Indication: PREMEDICATION
     Dosage: UNK, UNKNOWN
     Route: 065

REACTIONS (2)
  - Cough [Recovered/Resolved with Sequelae]
  - Respiratory distress [Recovered/Resolved with Sequelae]
